FAERS Safety Report 7345281-X (Version None)
Quarter: 2011Q1

REPORT INFORMATION
  Report Type: 
  Country: None (occurrence: None)
  Receive Date: 20110310
  Receipt Date: 20110302
  Transmission Date: 20110831
  Serious: Yes (Other)
  Sender: FDA-Public Use
  Company Number: US-ASTRAZENECA-2011SE11636

PATIENT
  Sex: Male

DRUGS (14)
  1. LISINOPRIL [Concomitant]
  2. DOXAZOSIN [Concomitant]
  3. METHADONE [Concomitant]
  4. SEROQUEL XR [Suspect]
     Route: 048
     Dates: start: 20100901
  5. SEROQUEL XR [Suspect]
     Route: 048
     Dates: start: 20100901
  6. OMEPRAZOLE [Concomitant]
  7. FINASTERIDE [Concomitant]
  8. SEROQUEL XR [Suspect]
     Indication: INSOMNIA
     Route: 048
     Dates: start: 20080101, end: 20100901
  9. CYMBALTA [Concomitant]
  10. GEMFIBROZIL [Concomitant]
  11. ASA BABY [Concomitant]
  12. SEROQUEL XR [Suspect]
     Indication: DEPRESSION
     Route: 048
     Dates: start: 20080101, end: 20100901
  13. NIASPAN [Concomitant]
  14. SIMVASTATIN [Concomitant]

REACTIONS (4)
  - WRONG TECHNIQUE IN DRUG USAGE PROCESS [None]
  - INSOMNIA [None]
  - CORONARY ARTERIAL STENT INSERTION [None]
  - DRUG INEFFECTIVE FOR UNAPPROVED INDICATION [None]
